FAERS Safety Report 8482358-X (Version None)
Quarter: 2012Q3

REPORT INFORMATION
  Report Type: 
  Country: None (occurrence: None)
  Receive Date: 20120702
  Receipt Date: 20120625
  Transmission Date: 20120928
  Serious: Yes (Other)
  Sender: FDA-Public Use
  Company Number: US-UCBSA-060526

PATIENT
  Age: 58 Year
  Sex: Female

DRUGS (1)
  1. CIMZIA [Suspect]
     Indication: RHEUMATOID ARTHRITIS
     Dates: start: 20111027, end: 20120322

REACTIONS (4)
  - VAGINAL INFECTION [None]
  - OEDEMA PERIPHERAL [None]
  - BRONCHITIS [None]
  - ABASIA [None]
